FAERS Safety Report 24170573 (Version 2)
Quarter: 2024Q4

REPORT INFORMATION
  Report Type: Report from Study
  Country: UY (occurrence: UY)
  Receive Date: 20240803
  Receipt Date: 20241106
  Transmission Date: 20250114
  Serious: Yes (Hospitalization, Other)
  Sender: ABBVIE
  Company Number: UY-ABBVIE-5647671

PATIENT
  Age: 49 Year
  Sex: Female

DRUGS (2)
  1. HUMIRA [Suspect]
     Active Substance: ADALIMUMAB
     Indication: Spondylitis
     Dosage: FORM STRENGTH 40 MG
     Route: 058
     Dates: start: 20140401, end: 20231226
  2. HUMIRA [Suspect]
     Active Substance: ADALIMUMAB
     Dosage: FORM STRENGTH: 40 MG
     Route: 058
     Dates: end: 202401

REACTIONS (5)
  - Cerebrovascular accident [Unknown]
  - COVID-19 [Unknown]
  - Cardiac failure [Not Recovered/Not Resolved]
  - Dyspnoea [Unknown]
  - Diabetes mellitus [Not Recovered/Not Resolved]

NARRATIVE: CASE EVENT DATE: 20240101
